FAERS Safety Report 14056891 (Version 7)
Quarter: 2019Q4

REPORT INFORMATION
  Report Type: Spontaneous
  Country: KR (occurrence: KR)
  Receive Date: 20171006
  Receipt Date: 20191213
  Transmission Date: 20200122
  Serious: No
  Sender: FDA-Public Use
  Company Number: KR-009507513-1710KOR001250

PATIENT
  Age: 62 Year
  Sex: Male
  Weight: 70.4 kg

DRUGS (11)
  1. DEXAMETHASONE SODIUM PHOSPHATE. [Suspect]
     Active Substance: DEXAMETHASONE SODIUM PHOSPHATE
     Dosage: 5 MG, BID (TWICE DAY); STRENGTH: 5MG/ML
     Route: 042
     Dates: start: 20170807, end: 20170807
  2. VESANOID [Suspect]
     Active Substance: TRETINOIN
     Indication: ACUTE MYELOID LEUKAEMIA
     Dosage: 40 MG, BID (TWICE DAY)
     Route: 048
     Dates: start: 20170706, end: 20170818
  3. DEXAMETHASONE SODIUM PHOSPHATE. [Suspect]
     Active Substance: DEXAMETHASONE SODIUM PHOSPHATE
     Indication: PAIN IN EXTREMITY
     Dosage: 5 MG, BID (TWICE DAY); STRENGTH: 5MG/ML
     Route: 042
     Dates: start: 20170724, end: 20170726
  4. NOXAFIL [Suspect]
     Active Substance: POSACONAZOLE
     Indication: ANTIFUNGAL PROPHYLAXIS
     Dosage: 300 MG, TWICE A DAY
     Route: 048
     Dates: start: 20170713, end: 20170713
  5. NOXAFIL [Suspect]
     Active Substance: POSACONAZOLE
     Dosage: 300 MG, ONCE A DAY
     Route: 048
     Dates: start: 20170714, end: 20170808
  6. DEXAMETHASONE SODIUM PHOSPHATE. [Suspect]
     Active Substance: DEXAMETHASONE SODIUM PHOSPHATE
     Dosage: 10 MG, BID (TWICE DAY); STRENGTH: 5MG/ML
     Route: 042
     Dates: start: 20170803, end: 20170806
  7. IDARUBICIN HYDROCHLORIDE. [Concomitant]
     Active Substance: IDARUBICIN HYDROCHLORIDE
     Indication: ACUTE MYELOID LEUKAEMIA
     Dosage: 21.5 MG, ONCE EVERY OTHER DAY
     Route: 042
     Dates: start: 20170708, end: 20170712
  8. TAZOPERAN (PIPERACILLIN\TAZOBACTAM) [Suspect]
     Active Substance: PIPERACILLIN SODIUM\TAZOBACTAM SODIUM
     Indication: INFECTION PROPHYLAXIS
     Dosage: 4.5 G, FOUR TIMES DAY
     Route: 042
     Dates: start: 20170706, end: 20170717
  9. DEXAMETHASONE SODIUM PHOSPHATE. [Suspect]
     Active Substance: DEXAMETHASONE SODIUM PHOSPHATE
     Indication: RASH
     Dosage: 10 MG, BID (TWICE DAY); STRENGTH: 5MG/ML
     Route: 042
     Dates: start: 20170720, end: 20170723
  10. CRAVIT [Concomitant]
     Active Substance: LEVOFLOXACIN
     Indication: INFECTION PROPHYLAXIS
     Dosage: 500 MG, QD (ONCE DAILY)
     Route: 048
     Dates: start: 20170714, end: 20170715
  11. DEXAMETHASONE SODIUM PHOSPHATE. [Suspect]
     Active Substance: DEXAMETHASONE SODIUM PHOSPHATE
     Dosage: 5 MG, QD (ONCE DAILY); STRENGTH: 5MG/ML
     Route: 042
     Dates: start: 20170808, end: 20170808

REACTIONS (8)
  - Haemoptysis [Recovered/Resolved]
  - Oral herpes [Recovered/Resolved]
  - Pain in extremity [Recovered/Resolved]
  - Rash [Recovered/Resolved]
  - Hyperglycaemia [Recovered/Resolved]
  - Dry mouth [Recovered/Resolved]
  - Pyrexia [Recovered/Resolved]
  - Asthenia [Recovered/Resolved]

NARRATIVE: CASE EVENT DATE: 20170715
